FAERS Safety Report 5602361-4 (Version None)
Quarter: 2008Q1

REPORT INFORMATION
  Report Type: 
  Country: None (occurrence: None)
  Receive Date: 20080118
  Receipt Date: 20080107
  Transmission Date: 20080703
  Serious: Yes (Other)
  Sender: FDA-Public Use
  Company Number: 2008001051

PATIENT
  Age: 40 Year
  Sex: Female
  Weight: 87.9978 kg

DRUGS (1)
  1. LUBRIDERM INTENSE REPAIR BODY LOTION (NO ACTIVE INGREDIENT) [Suspect]
     Indication: DRY SKIN
     Dosage: USED ON WHOLE BODY 2X (EXACT DOSE UNSP), TOPICAL
     Route: 061

REACTIONS (1)
  - HYPERSENSITIVITY [None]
